FAERS Safety Report 8406807-8 (Version None)
Quarter: 2012Q2

REPORT INFORMATION
  Report Type: 
  Country: None (occurrence: None)
  Receive Date: 20120529
  Receipt Date: 20001019
  Transmission Date: 20120825
  Serious: Yes (Hospitalization)
  Sender: FDA-Public Use
  Company Number: 02100-JPN-00-0087

PATIENT
  Age: 66 Year
  Sex: Female
  Weight: 48 kg

DRUGS (3)
  1. WARFARIN SODIUM [Concomitant]
  2. METHYCOBAL (MECOBALAMIN) TABLET [Concomitant]
  3. PLETAL [Suspect]
     Indication: PERIPHERAL ARTERIAL OCCLUSIVE DISEASE
     Dosage: 200 MG, QD, ORAL
     Route: 048
     Dates: start: 19990404

REACTIONS (14)
  - RAYNAUD'S PHENOMENON [None]
  - WHITE BLOOD CELL COUNT DECREASED [None]
  - BLOOD IMMUNOGLOBULIN G INCREASED [None]
  - COMPLEMENT FACTOR DECREASED [None]
  - MUSCULOSKELETAL STIFFNESS [None]
  - ARTHRALGIA [None]
  - DECREASED APPETITE [None]
  - PYREXIA [None]
  - DNA ANTIBODY POSITIVE [None]
  - ANTINUCLEAR ANTIBODY POSITIVE [None]
  - FATIGUE [None]
  - RED BLOOD CELL COUNT DECREASED [None]
  - ANAEMIA [None]
  - SJOGREN'S SYNDROME [None]
